FAERS Safety Report 5595945-3 (Version None)
Quarter: 2008Q1

REPORT INFORMATION
  Report Type: 
  Country: None (occurrence: None)
  Receive Date: 20080118
  Receipt Date: 20080114
  Transmission Date: 20080703
  Serious: Yes (Death)
  Sender: FDA-Public Use
  Company Number: US-PURDUE-USA_2007_0030856

PATIENT
  Age: 50 Year
  Sex: Male
  Weight: 96 kg

DRUGS (2)
  1. OXYCONTIN [Suspect]
     Indication: DRUG USE FOR UNKNOWN INDICATION
     Dosage: 200 MG, SEE TEXT
     Route: 048
     Dates: start: 20020422, end: 20071203
  2. OXYCONTIN [Suspect]
     Dosage: 40 MG, Q12H

REACTIONS (1)
  - DEATH [None]
